FAERS Safety Report 10217144 (Version 3)
Quarter: 2014Q2

REPORT INFORMATION
  Report Type: Spontaneous
  Country: ES (occurrence: ES)
  Receive Date: 20140604
  Receipt Date: 20140620
  Transmission Date: 20141212
  Serious: Yes (Hospitalization)
  Sender: FDA-Public Use
  Company Number: PHHY2014ES067983

PATIENT
  Age: 23 Year
  Sex: Female

DRUGS (2)
  1. GILENYA [Suspect]
     Route: 048
     Dates: end: 20140604
  2. GILENYA [Suspect]
     Route: 048

REACTIONS (3)
  - Abortion spontaneous [Unknown]
  - Blighted ovum [Unknown]
  - Maternal exposure during pregnancy [Unknown]
